FAERS Safety Report 9068729 (Version 1)
Quarter: 2013Q1

REPORT INFORMATION
  Report Type: Spontaneous
  Country: US (occurrence: None)
  Receive Date: 20130212
  Receipt Date: 20130212
  Transmission Date: 20140127
  Serious: Yes (Other)
  Sender: FDA-Public Use
  Company Number: None

PATIENT
  Age: 46 Year
  Sex: Female
  Weight: .66 kg

DRUGS (1)
  1. SEPTOCAINE [Suspect]
     Indication: TOOTH REPAIR
     Dosage: ARTICAINE HYD. 4% AND EPINEPHRINE 1 TIME ONLY
     Dates: start: 20120131

REACTIONS (4)
  - Pain [None]
  - Burning sensation [None]
  - Paraesthesia [None]
  - Hypoaesthesia [None]
